FAERS Safety Report 6892398-X (Version None)
Quarter: 2010Q3

REPORT INFORMATION
  Report Type: 
  Country: None (occurrence: None)
  Receive Date: 20100731
  Receipt Date: 20080508
  Transmission Date: 20110219
  Serious: No
  Sender: FDA-Public Use
  Company Number: US-PFIZER INC-2008020823

PATIENT
  Sex: Female
  Weight: 45.36 kg

DRUGS (9)
  1. NORVASC [Suspect]
     Indication: HYPERTENSION
     Route: 048
     Dates: start: 20050706
  2. LOPRESSOR [Concomitant]
  3. ZESTRIL [Concomitant]
  4. FUROSEMIDE [Concomitant]
  5. MEVACOR [Concomitant]
  6. ACTONEL [Concomitant]
  7. ONE-A-DAY [Concomitant]
  8. CALCIUM [Concomitant]
  9. ACETYLSALICYLIC ACID SRT [Concomitant]

REACTIONS (2)
  - BONE DENSITY DECREASED [None]
  - EXPIRED DRUG ADMINISTERED [None]
